FAERS Safety Report 10788453 (Version 1)
Quarter: 2015Q1

REPORT INFORMATION
  Report Type: Spontaneous
  Country: US (occurrence: None)
  Receive Date: 20150210
  Receipt Date: 20150210
  Transmission Date: 20150721
  Serious: Yes (Other)
  Sender: FDA-Public Use
  Company Number: 2015VER00046

PATIENT
  Age: 19 Year
  Sex: Female
  Weight: 61.2 kg

DRUGS (1)
  1. MYORISAN [Suspect]
     Active Substance: ISOTRETINOIN
     Indication: ACNE
     Dates: start: 20130124

REACTIONS (2)
  - Drug effect incomplete [None]
  - Mood altered [None]
